FAERS Safety Report 9596375 (Version 2)
Quarter: 2013Q4

REPORT INFORMATION
  Report Type: Report from Study
  Country: DE (occurrence: DE)
  Receive Date: 20131004
  Receipt Date: 20131022
  Transmission Date: 20140711
  Serious: Yes (Hospitalization)
  Sender: FDA-Public Use
  Company Number: DE-TEVA-436172USA

PATIENT
  Age: 68 Year
  Sex: Female

DRUGS (13)
  1. BENDAMUSTINE [Suspect]
     Indication: NON-HODGKIN^S LYMPHOMA
     Dosage: EVERY FOUR WEEKS
     Route: 042
     Dates: start: 20130408
  2. BENDAMUSTINE [Suspect]
     Route: 042
     Dates: start: 20130702
  3. OBINUTUZUMAB [Suspect]
     Indication: NON-HODGKIN^S LYMPHOMA
     Dosage: EVERY FOUR WEEKS
     Route: 042
     Dates: start: 20130408
  4. OBINUTUZUMAB [Suspect]
     Dosage: CONCENTRATION OF 4MG/ML
     Route: 042
     Dates: start: 20130701
  5. TAVEGIL [Concomitant]
     Indication: PREMEDICATION
     Dates: start: 20130408
  6. PARACETAMOL [Concomitant]
     Indication: PREMEDICATION
     Dates: start: 20130408
  7. RANITIDIN [Concomitant]
     Indication: PREMEDICATION
     Dates: start: 20130408
  8. GRANISETRON HYDROCHLORIDE [Concomitant]
     Indication: PREMEDICATION
     Dates: start: 20130408
  9. ATACAND [Concomitant]
     Indication: ESSENTIAL HYPERTENSION
  10. VALTREX [Concomitant]
     Indication: GENITAL HERPES
     Dates: start: 20100301
  11. PANTOPRAZOLE [Concomitant]
     Indication: PROPHYLAXIS AGAINST GASTROINTESTINAL ULCER
     Dates: start: 20130408
  12. COTRIM FORTE [Concomitant]
     Indication: INFECTION PROPHYLAXIS
     Dates: start: 20130413
  13. SODIUM CHLORIDE [Concomitant]
     Dates: start: 20130701, end: 20130702

REACTIONS (2)
  - Sinus bradycardia [Recovered/Resolved]
  - Circulatory collapse [Recovered/Resolved]
